FAERS Safety Report 9266580 (Version 9)
Quarter: 2016Q1

REPORT INFORMATION
  Report Type: Report from Study
  Country: CA (occurrence: CA)
  Receive Date: 20130502
  Receipt Date: 20160202
  Transmission Date: 20160526
  Serious: Yes (Hospitalization, Other)
  Sender: FDA-Public Use
  Company Number: PHHY2013CA043194

PATIENT
  Age: 66 Year
  Sex: Female

DRUGS (12)
  1. DIAMICRON [Concomitant]
     Active Substance: GLICLAZIDE
     Indication: PRODUCT USED FOR UNKNOWN INDICATION
     Route: 065
  2. SEREVENT DISKUS [Concomitant]
     Active Substance: SALMETEROL XINAFOATE
     Indication: PRODUCT USED FOR UNKNOWN INDICATION
     Route: 065
  3. PREGABALIN. [Concomitant]
     Active Substance: PREGABALIN
     Indication: PRODUCT USED FOR UNKNOWN INDICATION
     Route: 065
  4. TASIGNA [Suspect]
     Active Substance: NILOTINIB
     Indication: CHRONIC MYELOID LEUKAEMIA
     Dosage: 400 MG, BID
     Route: 048
     Dates: start: 200901, end: 201405
  5. METFORMIN [Concomitant]
     Active Substance: METFORMIN HYDROCHLORIDE
     Indication: PRODUCT USED FOR UNKNOWN INDICATION
     Route: 065
  6. VENTOLIN [Concomitant]
     Active Substance: ALBUTEROL SULFATE
     Indication: PRODUCT USED FOR UNKNOWN INDICATION
     Route: 065
  7. CRESTOR [Concomitant]
     Active Substance: ROSUVASTATIN CALCIUM
     Indication: PRODUCT USED FOR UNKNOWN INDICATION
     Route: 065
  8. MACROBID [Suspect]
     Active Substance: NITROFURANTOIN\NITROFURANTOIN MONOHYDRATE
     Indication: URINARY TRACT INFECTION
     Route: 065
  9. CIPRO [Suspect]
     Active Substance: CIPROFLOXACIN HYDROCHLORIDE
     Indication: CYSTITIS
     Route: 065
  10. JANUVIA [Concomitant]
     Active Substance: SITAGLIPTIN PHOSPHATE
     Indication: PRODUCT USED FOR UNKNOWN INDICATION
     Route: 065
  11. TASIGNA [Suspect]
     Active Substance: NILOTINIB
     Dosage: 400 MG, BID
     Route: 048
     Dates: start: 201410
  12. ANTI ALLERGIC AGENTS [Suspect]
     Active Substance: UNSPECIFIED INGREDIENT
     Indication: SINUS DISORDER
     Route: 065

REACTIONS (32)
  - Myocardial infarction [Unknown]
  - Cellulitis [Unknown]
  - Back pain [Unknown]
  - Blood potassium decreased [Unknown]
  - Pruritus [Unknown]
  - Nasopharyngitis [Unknown]
  - Vaginal infection [Recovered/Resolved]
  - Photosensitivity reaction [Unknown]
  - Calculus bladder [Unknown]
  - Urinary tract infection [Recovered/Resolved]
  - Urethral pain [Unknown]
  - Secretion discharge [Unknown]
  - Palpitations [Recovered/Resolved]
  - Extremity necrosis [Unknown]
  - Pulmonary congestion [Recovering/Resolving]
  - Urinary retention [Recovered/Resolved]
  - Vulvovaginal burning sensation [Recovering/Resolving]
  - Peripheral swelling [Unknown]
  - Cough [Unknown]
  - Alopecia [Unknown]
  - Dehydration [Unknown]
  - Erythema [Unknown]
  - Dyspnoea [Recovering/Resolving]
  - Drug hypersensitivity [Unknown]
  - Acne [Unknown]
  - Lung infection [Unknown]
  - Abdominal pain [Recovered/Resolved]
  - Constipation [Unknown]
  - Malaise [Unknown]
  - Localised infection [Unknown]
  - Pneumonia [Unknown]
  - Vulvovaginal dryness [Unknown]

NARRATIVE: CASE EVENT DATE: 201302
